FAERS Safety Report 6297338-2 (Version None)
Quarter: 2009Q3

REPORT INFORMATION
  Report Type: 
  Country: None (occurrence: None)
  Receive Date: 20090804
  Receipt Date: 20090804
  Transmission Date: 20100115
  Serious: Yes (Life-Threatening, Hospitalization, Disabling)
  Sender: FDA-Public Use
  Company Number: None

PATIENT
  Sex: Female
  Weight: 80.4681 kg

DRUGS (1)
  1. LEVOTHYROXINE SODIUM [Suspect]
     Indication: HYPOTHYROIDISM
     Dosage: 100MCG EVERY AM PILL LOWERED TO 25 MCG
     Dates: start: 20070901, end: 20090720

REACTIONS (6)
  - AMNESIA [None]
  - CARDIAC DISORDER [None]
  - COUGH [None]
  - DYSPNOEA [None]
  - LUNG DISORDER [None]
  - SLEEP DISORDER [None]
